FAERS Safety Report 25488116 (Version 1)
Quarter: 2025Q2

REPORT INFORMATION
  Report Type: Other
  Country: FR (occurrence: FR)
  Receive Date: 20250627
  Receipt Date: 20250627
  Transmission Date: 20250717
  Serious: Yes (Life-Threatening, Hospitalization)
  Sender: ZYDUS PHARM
  Company Number: None

PATIENT

DRUGS (9)
  1. PAROXETINE [Interacting]
     Active Substance: PAROXETINE
     Indication: Psychiatric decompensation
     Route: 048
     Dates: start: 20250528
  2. RISPERIDONE [Interacting]
     Active Substance: RISPERIDONE
     Indication: Psychiatric decompensation
     Route: 048
     Dates: start: 20250510, end: 20250523
  3. RISPERIDONE [Interacting]
     Active Substance: RISPERIDONE
     Route: 048
     Dates: start: 20250523, end: 20250602
  4. RISPERIDONE [Interacting]
     Active Substance: RISPERIDONE
     Route: 048
     Dates: start: 20250602
  5. LOXAPINE SUCCINATE [Concomitant]
     Active Substance: LOXAPINE SUCCINATE
     Indication: Psychiatric decompensation
     Route: 048
     Dates: start: 20250530, end: 20250601
  6. VALIUM [Concomitant]
     Active Substance: DIAZEPAM
     Indication: Psychiatric decompensation
     Route: 048
     Dates: start: 20250529, end: 20250602
  7. VALIUM [Concomitant]
     Active Substance: DIAZEPAM
     Route: 048
     Dates: start: 20250602, end: 20250603
  8. VALIUM [Concomitant]
     Active Substance: DIAZEPAM
     Route: 048
     Dates: start: 20250604, end: 20250604
  9. PYRIDOSTIGMINE BROMIDE [Concomitant]
     Active Substance: PYRIDOSTIGMINE BROMIDE
     Indication: Product used for unknown indication
     Route: 048
     Dates: start: 20250530, end: 20250605

REACTIONS (3)
  - Acute myocardial infarction [Recovered/Resolved]
  - Drug interaction [Not Recovered/Not Resolved]
  - Potentiating drug interaction [Not Recovered/Not Resolved]

NARRATIVE: CASE EVENT DATE: 20250528
